FAERS Safety Report 19159756 (Version 1)
Quarter: 2021Q2

REPORT INFORMATION
  Report Type: Spontaneous
  Country: US (occurrence: US)
  Receive Date: 20210420
  Receipt Date: 20210420
  Transmission Date: 20210717
  Serious: No
  Sender: FDA-Public Use
  Company Number: US-ENDO PHARMACEUTICALS INC-2020-003303

PATIENT
  Sex: Male

DRUGS (2)
  1. AVEED [Suspect]
     Active Substance: TESTOSTERONE UNDECANOATE
     Indication: TESTICULAR FAILURE
     Dosage: 750 MCG, UNKNOWN (2ND INJECTION)
     Route: 065
     Dates: start: 20191118
  2. AVEED [Suspect]
     Active Substance: TESTOSTERONE UNDECANOATE
     Dosage: 750 MCG, UNKNOWN (1IST INJECTION)
     Route: 065
     Dates: start: 20191118

REACTIONS (4)
  - Nausea [Unknown]
  - Therapeutic product effect decreased [Unknown]
  - Hot flush [Unknown]
  - Asthenia [Unknown]
